FAERS Safety Report 5822587-4 (Version None)
Quarter: 2008Q3

REPORT INFORMATION
  Report Type: 
  Country: None (occurrence: None)
  Receive Date: 20080723
  Receipt Date: 20080723
  Transmission Date: 20090109
  Serious: Yes (Life-Threatening, Hospitalization)
  Sender: FDA-Public Use
  Company Number: None

PATIENT
  Age: 77 Year
  Sex: Male
  Weight: 99.8 kg

DRUGS (2)
  1. VANCOMYCIN HCL [Suspect]
     Indication: ANTIBIOTIC PROPHYLAXIS
     Dosage: 1000 MG ONCE IV
     Route: 042
     Dates: start: 20080721
  2. GENTAMICIN [Suspect]
     Dosage: 80 MG ONCE IV
     Route: 042
     Dates: start: 20080721

REACTIONS (12)
  - BRADYCARDIA [None]
  - CARDIO-RESPIRATORY ARREST [None]
  - CONSCIOUSNESS FLUCTUATING [None]
  - CONVULSION [None]
  - ERYTHEMA [None]
  - HEART RATE DECREASED [None]
  - HYPERHIDROSIS [None]
  - HYPOTENSION [None]
  - LOSS OF CONSCIOUSNESS [None]
  - PULSE ABSENT [None]
  - SYNCOPE [None]
  - UNRESPONSIVE TO STIMULI [None]
